FAERS Safety Report 8521364-3 (Version None)
Quarter: 2012Q3

REPORT INFORMATION
  Report Type: 
  Country: None (occurrence: None)
  Receive Date: 20120719
  Receipt Date: 20120710
  Transmission Date: 20120928
  Serious: Yes (Hospitalization)
  Sender: FDA-Public Use
  Company Number: ES-ASTRAZENECA-2012SE48644

PATIENT
  Age: 56 Year
  Sex: Male

DRUGS (1)
  1. VANDETANIB [Suspect]
     Route: 048

REACTIONS (4)
  - ADVERSE EVENT [None]
  - HYPOCALCAEMIA [None]
  - RENAL FAILURE [None]
  - HYPOPARATHYROIDISM [None]
